FAERS Safety Report 23844437 (Version 1)
Quarter: 2024Q2

REPORT INFORMATION
  Report Type: Spontaneous
  Country: BR (occurrence: BR)
  Receive Date: 20240510
  Receipt Date: 20240510
  Transmission Date: 20240717
  Serious: Yes (Disabling, Other)
  Sender: FDA-Public Use
  Company Number: BR-SA-SAC20240508001532

PATIENT
  Age: 5 Year
  Sex: Female

DRUGS (5)
  1. SABRIL [Suspect]
     Active Substance: VIGABATRIN
     Indication: Epileptic encephalopathy
     Dosage: 1.5 DF, QD (HALF A CAPSULE IN THE MORNING AND 1 CAPSULE IN THE EVENING)
     Route: 048
  2. CLOBAZAM [Concomitant]
     Active Substance: CLOBAZAM
     Indication: Epileptic encephalopathy
     Dosage: 0.5 DF, Q12H
     Route: 048
  3. TOPIRAMATE [Concomitant]
     Active Substance: TOPIRAMATE
     Indication: Epileptic encephalopathy
     Dosage: 1.5 DF, QD (ONE CAPSULE IN THE MORNING AND HALF A CAPSULE AT NIGHT)
     Route: 048
  4. CANNABIDIOL [Concomitant]
     Active Substance: CANNABIDIOL
     Indication: Epileptic encephalopathy
     Dosage: 1.2 ML, Q12H
     Route: 048
  5. LEVETIRACETAM [Concomitant]
     Active Substance: LEVETIRACETAM
     Indication: Epileptic encephalopathy
     Dosage: 4 ML, Q12H
     Route: 048

REACTIONS (8)
  - Quadriparesis [Not Recovered/Not Resolved]
  - Loss of personal independence in daily activities [Unknown]
  - Seizure [Unknown]
  - Drug ineffective [Unknown]
  - Language disorder [Not Recovered/Not Resolved]
  - Respiratory disorder [Unknown]
  - Feeding disorder [Unknown]
  - Wrong technique in product usage process [Unknown]
